FAERS Safety Report 22288809 (Version 2)
Quarter: 2023Q2

REPORT INFORMATION
  Report Type: Spontaneous
  Country: ES (occurrence: ES)
  Receive Date: 20230505
  Receipt Date: 20230509
  Transmission Date: 20230722
  Serious: Yes (Other)
  Sender: FDA-Public Use
  Company Number: None

PATIENT
  Age: 35 Year
  Sex: Male

DRUGS (5)
  1. ZIEXTENZO [Suspect]
     Active Substance: PEGFILGRASTIM-BMEZ
     Indication: Chemotherapy cytokine prophylaxis
     Dosage: 6 MG, QW (6 MG UNA VEZ A LA SEMANA, RECIBI? UNA DOSIS EL 4/04/2023)
     Route: 058
     Dates: start: 20230328
  2. ZIEXTENZO [Suspect]
     Active Substance: PEGFILGRASTIM-BMEZ
     Dosage: 6 MG, ONCE/SINGLE (PREVIAMENTE CON OTRO BIOSIMILAR, PRIMERA DOSIS DE ZIEXTENZO EL 4/04/2023)
     Route: 058
     Dates: start: 20230404, end: 20230404
  3. ETOPOSIDE [Suspect]
     Active Substance: ETOPOSIDE
     Indication: Germ cell neoplasm
     Dosage: 985 MG, CYCLIC (197 MG /D?A, D?AS 1-5 DEL CICLO DE 21 D?AS, ?LTIMA DOSIS ANTES DE RAM: 31/03/2023)
     Route: 042
     Dates: start: 20230213
  4. CISPLATIN [Suspect]
     Active Substance: CISPLATIN
     Indication: Germ cell neoplasm
     Dosage: 197 MG, CYCLIC (DOSIS: 39.4 MG /D?A, D?AS 1-5 DEL CICLO DE 21 D?AS. ?LTIMA DOSIS ANTES DE RAM: 31/03
     Route: 042
     Dates: start: 20230213
  5. BLEOMYCIN SULFATE [Suspect]
     Active Substance: BLEOMYCIN SULFATE
     Indication: Germ cell neoplasm
     Dosage: 30 IU, QW (RECIBBI? UNA DOSIS EN 04/04/023, EL MISMO D?A DE LA RAM)
     Route: 042
     Dates: start: 20230213

REACTIONS (2)
  - Syncope [Recovered/Resolved]
  - Malaise [Recovered/Resolved]

NARRATIVE: CASE EVENT DATE: 20230404
